FAERS Safety Report 5490339-3 (Version None)
Quarter: 2007Q4

REPORT INFORMATION
  Report Type: 
  Country: None (occurrence: None)
  Receive Date: 20071017
  Receipt Date: 20071010
  Transmission Date: 20080405
  Serious: Yes (Death)
  Sender: FDA-Public Use
  Company Number: 163-21880-07090819

PATIENT
  Age: 58 Year
  Sex: Female

DRUGS (1)
  1. REVLIMID [Suspect]
     Indication: MULTIPLE MYELOMA

REACTIONS (5)
  - FATIGUE [None]
  - MALAISE [None]
  - PNEUMONIA [None]
  - SEPSIS [None]
  - WEIGHT DECREASED [None]
